FAERS Safety Report 8964602 (Version 1)
Quarter: 2012Q4

REPORT INFORMATION
  Report Type: Report from Study
  Country: CA (occurrence: CA)
  Receive Date: 20121214
  Receipt Date: 20121214
  Transmission Date: 20130627
  Serious: Yes (Other)
  Sender: FDA-Public Use
  Company Number: CA-JNJFOC-20121203320

PATIENT
  Sex: Female
  Weight: 60 kg

DRUGS (3)
  1. REMICADE [Suspect]
     Indication: CROHN^S DISEASE
     Route: 042
     Dates: start: 201102
  2. IMURAN [Concomitant]
     Dosage: for a duration of 10 years
     Route: 065
  3. VITAMIN B12 [Concomitant]
     Route: 065

REACTIONS (2)
  - Rectal abscess [Recovering/Resolving]
  - Candidiasis [Recovering/Resolving]
